FAERS Safety Report 4395601-3 (Version None)
Quarter: 2004Q3

REPORT INFORMATION
  Report Type: 
  Country: None (occurrence: None)
  Receive Date: 20040712
  Receipt Date: 20040712
  Transmission Date: 20050211
  Serious: Yes (Other)
  Sender: FDA-Public Use
  Company Number: None

PATIENT
  Age: 75 Year
  Sex: Male
  Weight: 86.6 kg

DRUGS (16)
  1. OMEPRAZOLE [Suspect]
  2. TERAZOSIN HCL [Concomitant]
  3. IRBESARTAN [Concomitant]
  4. GABAPENTIN [Concomitant]
  5. METOPROLOL TARTRATE [Concomitant]
  6. LEVOTHYROXINE SODIUM [Concomitant]
  7. LANOXIN [Concomitant]
  8. COUMADIN [Concomitant]
  9. CILOSTAZOL [Concomitant]
  10. HUMULIN R [Concomitant]
  11. FOSINOPRIL NA [Concomitant]
  12. TRAMADOL HCL [Concomitant]
  13. INSULIN SYRINGE [Concomitant]
  14. FINASTERIDE [Concomitant]
  15. SIMVASTATIN [Concomitant]
  16. FELODIPINE [Concomitant]

REACTIONS (1)
  - DIARRHOEA [None]
